FAERS Safety Report 7626513-7 (Version None)
Quarter: 2011Q3

REPORT INFORMATION
  Report Type: 
  Country: None (occurrence: None)
  Receive Date: 20110721
  Receipt Date: 20110707
  Transmission Date: 20111222
  Serious: Yes (Other)
  Sender: FDA-Public Use
  Company Number: CN-ROCHE-788654

PATIENT
  Sex: Female
  Weight: 49.5 kg

DRUGS (14)
  1. PREDNISONE [Suspect]
     Indication: RENAL TRANSPLANT
     Route: 048
     Dates: start: 20040609
  2. BAILING CAPSULE [Concomitant]
     Indication: RENAL TRANSPLANT
     Route: 048
     Dates: start: 20040609
  3. CELLCEPT [Suspect]
     Route: 048
     Dates: start: 20101101
  4. NEORAL [Suspect]
     Route: 048
  5. BAILING CAPSULE [Concomitant]
     Route: 048
  6. DILTIAZEM HYDROCHLORIDE [Concomitant]
     Indication: HYPERTENSION
     Dosage: DRUG NAME REPORTED AS TIAN ER XIN
     Route: 048
  7. PREDNISONE [Suspect]
     Route: 048
  8. CELLCEPT [Suspect]
     Route: 048
     Dates: end: 20100101
  9. NITRENDIPIN [Concomitant]
     Indication: HYPERTENSION
     Route: 048
  10. NEORAL [Suspect]
     Dosage: 50 MG TWICE A DAY ALTERNATING WITH 25 MG IN THE MORNING 50 MG IN THE EVENING
     Route: 048
     Dates: start: 20101101
  11. CELLCEPT [Suspect]
     Indication: RENAL TRANSPLANT
     Dosage: 750 MG IN THE MORNING, 1000 MG IN THE EVENING.
     Route: 048
     Dates: start: 20040609
  12. CELLCEPT [Suspect]
     Dosage: 250 MG IN THE MORNING, 500 MG IN THE EVENING.
     Route: 048
     Dates: start: 20100101, end: 20101101
  13. NEORAL [Suspect]
     Indication: RENAL TRANSPLANT
     Route: 048
     Dates: start: 20040609
  14. NEORAL [Suspect]
     Route: 048
     Dates: end: 20101101

REACTIONS (10)
  - ANAEMIA [None]
  - ECCHYMOSIS [None]
  - AMENORRHOEA [None]
  - LIVER DISORDER [None]
  - BLOOD CREATININE INCREASED [None]
  - ALANINE AMINOTRANSFERASE INCREASED [None]
  - ARTHRALGIA [None]
  - IMMUNOSUPPRESSANT DRUG LEVEL INCREASED [None]
  - WHITE BLOOD CELL COUNT DECREASED [None]
  - GINGIVAL HYPERPLASIA [None]
